FAERS Safety Report 5793697-5 (Version None)
Quarter: 2008Q2

REPORT INFORMATION
  Report Type: 
  Country: None (occurrence: None)
  Receive Date: 20080627
  Receipt Date: 20080620
  Transmission Date: 20081010
  Serious: Yes (Other)
  Sender: FDA-Public Use
  Company Number: US-AMGEN-QUU286046

PATIENT
  Sex: Female

DRUGS (4)
  1. ENBREL [Suspect]
     Indication: PSORIATIC ARTHROPATHY
     Route: 058
     Dates: start: 19991019
  2. ENBREL [Suspect]
     Indication: PSORIASIS
  3. CLOMID [Concomitant]
     Dates: start: 20010101
  4. HEPARIN [Concomitant]
     Route: 058
     Dates: start: 20010101, end: 20010101

REACTIONS (4)
  - ABORTION MISSED [None]
  - INTRA-UTERINE DEATH [None]
  - JOINT SWELLING [None]
  - VOMITING IN PREGNANCY [None]
